FAERS Safety Report 18926023 (Version 1)
Quarter: 2021Q1

REPORT INFORMATION
  Report Type: Spontaneous
  Country: IN (occurrence: IN)
  Receive Date: 20210222
  Receipt Date: 20210222
  Transmission Date: 20210420
  Serious: Yes (Other)
  Sender: FDA-Public Use
  Company Number: IN-SUN PHARMACEUTICAL INDUSTRIES LTD-2021R1-282167

PATIENT
  Age: 35 Year
  Sex: Male

DRUGS (4)
  1. HYDROXYCHLOROQUINE [Suspect]
     Active Substance: HYDROXYCHLOROQUINE
     Indication: CHILLS
     Dosage: 200 MILLIGRAM , UNK
     Route: 065
  2. HYDROXYCHLOROQUINE [Suspect]
     Active Substance: HYDROXYCHLOROQUINE
     Indication: PYREXIA
     Dosage: UNK, BID
     Route: 065
  3. HYDROXYCHLOROQUINE [Suspect]
     Active Substance: HYDROXYCHLOROQUINE
     Indication: ASTHENIA
  4. CEFUROXIME. [Suspect]
     Active Substance: CEFUROXIME
     Indication: FREQUENT BOWEL MOVEMENTS
     Dosage: 500 MILLIGRAM , UNK
     Route: 042

REACTIONS (2)
  - Generalised tonic-clonic seizure [Unknown]
  - Frequent bowel movements [Unknown]
